FAERS Safety Report 10402235 (Version 3)
Quarter: 2014Q3

REPORT INFORMATION
  Report Type: Spontaneous
  Country: US (occurrence: US)
  Receive Date: 20140822
  Receipt Date: 20140904
  Transmission Date: 20150326
  Serious: Yes (Death, Hospitalization, Other)
  Sender: FDA-Public Use
  Company Number: US-009507513-2008-183409-NL

PATIENT
  Sex: Female
  Weight: 102.6 kg

DRUGS (3)
  1. NUVARING [Suspect]
     Active Substance: ETHINYL ESTRADIOL\ETONOGESTREL
     Indication: CONTRACEPTION
     Dosage: CONTINUING: NO
     Route: 067
     Dates: start: 20060809, end: 20060907
  2. MOTRIN [Concomitant]
     Active Substance: IBUPROFEN
     Indication: PRODUCT USED FOR UNKNOWN INDICATION
  3. DOANS BACKACHE PILLS (MAGNESIUM SALICYLATE) [Concomitant]
     Indication: MUSCLE SPASMS

REACTIONS (13)
  - Hepatic failure [Fatal]
  - Atelectasis [Fatal]
  - Metabolic acidosis [Fatal]
  - Multi-organ failure [Fatal]
  - Hypotension [Fatal]
  - Cardio-respiratory arrest [Fatal]
  - Disseminated intravascular coagulation [Fatal]
  - Pulmonary infarction [Fatal]
  - Cholecystitis [Fatal]
  - Brain injury [Fatal]
  - Hepatic steatosis [Fatal]
  - Ascites [Fatal]
  - Septic shock [Fatal]

NARRATIVE: CASE EVENT DATE: 20060906
